FAERS Safety Report 10855269 (Version 7)
Quarter: 2016Q3

REPORT INFORMATION
  Report Type: Spontaneous
  Country: US (occurrence: US)
  Receive Date: 20150223
  Receipt Date: 20160715
  Transmission Date: 20161109
  Serious: Yes (Other)
  Sender: FDA-Public Use
  Company Number: US-PFIZER INC-2015064496

PATIENT
  Sex: Female

DRUGS (3)
  1. LYRICA [Suspect]
     Active Substance: PREGABALIN
     Indication: FIBROMYALGIA
     Dosage: UNK
     Dates: start: 20151117
  2. EFFEXOR XR [Suspect]
     Active Substance: VENLAFAXINE HYDROCHLORIDE
     Dosage: UNK
  3. FENTANYL. [Concomitant]
     Active Substance: FENTANYL
     Dosage: UNK

REACTIONS (9)
  - Visual impairment [Unknown]
  - Pain [Unknown]
  - Road traffic accident [Unknown]
  - Withdrawal syndrome [Unknown]
  - Cardiac failure [Unknown]
  - Cardiac disorder [Unknown]
  - Malaise [Unknown]
  - Depression [Unknown]
  - Drug ineffective [Unknown]
